FAERS Safety Report 7854152-1 (Version None)
Quarter: 2011Q3

REPORT INFORMATION
  Report Type: 
  Country: None (occurrence: None)
  Receive Date: 20110916
  Receipt Date: 20101216
  Transmission Date: 20111222
  Serious: Yes (Other)
  Sender: FDA-Public Use
  Company Number: 2010SP065083

PATIENT
  Age: 26 Year
  Sex: Female

DRUGS (2)
  1. IMPLANON [Suspect]
     Indication: CONTRACEPTION
     Dosage: 1 DF
     Dates: start: 20060101, end: 20110510
  2. ORAL CONTRACEPTION [Concomitant]

REACTIONS (4)
  - MENSTRUATION IRREGULAR [None]
  - AMENORRHOEA [None]
  - INFERTILITY FEMALE [None]
  - INCORRECT DRUG ADMINISTRATION DURATION [None]
